FAERS Safety Report 11692987 (Version 1)
Quarter: 2015Q4

REPORT INFORMATION
  Report Type: Spontaneous
  Country: US (occurrence: US)
  Receive Date: 20151103
  Receipt Date: 20151103
  Transmission Date: 20160304
  Serious: Yes (Other)
  Sender: FDA-Public Use
  Company Number: US-BAYER-2015-398413

PATIENT
  Age: 40 Year
  Sex: Female

DRUGS (1)
  1. MIRENA [Suspect]
     Active Substance: LEVONORGESTREL

REACTIONS (18)
  - Dysfunctional uterine bleeding [Unknown]
  - Human papilloma virus test positive [Unknown]
  - Acne [Unknown]
  - Endometritis [Unknown]
  - Uterine cyst [Unknown]
  - Procedural haemorrhage [Recovered/Resolved]
  - Menorrhagia [Unknown]
  - Dysmenorrhoea [Unknown]
  - Abdominal pain [Unknown]
  - Haemorrhagic ovarian cyst [Unknown]
  - Pelvic pain [Unknown]
  - Mood swings [Unknown]
  - Bacterial vaginosis [Unknown]
  - Abdominal pain [Recovered/Resolved]
  - Weight increased [Unknown]
  - Dyspareunia [Unknown]
  - Menorrhagia [Unknown]
  - Suprapubic pain [Unknown]

NARRATIVE: CASE EVENT DATE: 201201
